FAERS Safety Report 5735806-X (Version None)
Quarter: 2008Q2

REPORT INFORMATION
  Report Type: 
  Country: None (occurrence: None)
  Receive Date: 20080513
  Receipt Date: 20080429
  Transmission Date: 20081010
  Serious: Yes (Other)
  Sender: FDA-Public Use
  Company Number: FR-SOLVAY-00208001333

PATIENT
  Age: 28749 Day
  Sex: Female

DRUGS (3)
  1. PERINDOPRIL ERBUMINE [Suspect]
     Indication: HYPERTENSION
     Dosage: DAILY DOSE:  UNKNOWN
     Route: 048
  2. AMLOR [Suspect]
     Indication: HYPERTENSION
     Dosage: DAILY DOSE: 10 MILLIGRAM(S)
     Route: 048
     Dates: end: 20080318
  3. MODOPAR [Suspect]
     Indication: PARKINSON'S DISEASE
     Dosage: DAILY DOSE:  UNKNOWN
     Route: 048

REACTIONS (1)
  - RASH PRURITIC [None]
